FAERS Safety Report 22272157 (Version 1)
Quarter: 2023Q2

REPORT INFORMATION
  Report Type: Spontaneous
  Country: US (occurrence: US)
  Receive Date: 20230502
  Receipt Date: 20230502
  Transmission Date: 20230721
  Serious: No
  Sender: FDA-Public Use
  Company Number: US-BRISTOL-MYERS SQUIBB COMPANY-2023-061730

PATIENT
  Age: 82 Year
  Sex: Female
  Weight: 97.57 kg

DRUGS (1)
  1. REVLIMID [Suspect]
     Active Substance: LENALIDOMIDE
     Indication: Plasma cell myeloma
     Dosage: 2W, 2W OFF
     Route: 048

REACTIONS (3)
  - Peripheral swelling [Unknown]
  - Oedema [Unknown]
  - Off label use [Unknown]
